FAERS Safety Report 18174363 (Version 1)
Quarter: 2020Q3

REPORT INFORMATION
  Report Type: Spontaneous
  Country: US (occurrence: US)
  Receive Date: 20200820
  Receipt Date: 20200820
  Transmission Date: 20201103
  Serious: No
  Sender: FDA-Public Use
  Company Number: None

PATIENT
  Age: 74 Year
  Sex: Female
  Weight: 78.2 kg

DRUGS (2)
  1. CARBOPLATIN (214240) [Suspect]
     Active Substance: CARBOPLATIN
     Dates: end: 20200729
  2. TAXOL [Suspect]
     Active Substance: PACLITAXEL
     Dates: end: 20200729

REACTIONS (4)
  - Platelet count decreased [None]
  - Therapy interrupted [None]
  - Neutrophil count decreased [None]
  - Myelosuppression [None]

NARRATIVE: CASE EVENT DATE: 20200804
